FAERS Safety Report 6786630 (Version 3)
Quarter: 2013Q2

REPORT INFORMATION
  Report Type: Report from Study
  Country: US (occurrence: US)
  Receive Date: 20081014
  Receipt Date: 20130408
  Transmission Date: 20140414
  Serious: Yes (Other)
  Sender: FDA-Public Use
  Company Number: US-ROCHE-578587

PATIENT
  Age: 54 Year
  Sex: Female
  Weight: 51 kg

DRUGS (9)
  1. XELODA [Suspect]
     Indication: BREAST CANCER METASTATIC
     Route: 048
     Dates: start: 20080710, end: 20080716
  2. XELODA [Suspect]
     Route: 048
     Dates: start: 20080728, end: 20080803
  3. XELODA [Suspect]
     Route: 048
  4. NEXIUM [Concomitant]
     Indication: GASTROOESOPHAGEAL REFLUX DISEASE
     Route: 048
  5. VYTORIN [Concomitant]
     Indication: BLOOD CHOLESTEROL INCREASED
     Route: 048
  6. FLONASE [Concomitant]
     Indication: RHINITIS
     Dosage: ROUTE: NASAL, FORM: SPRAY AND FREQUENCY: DAILY.
     Route: 050
  7. HCTZ [Concomitant]
     Indication: HYPERTENSION
     Route: 065
  8. LISINOPRIL [Concomitant]
     Indication: HYPERTENSION
     Route: 065
  9. AVASTIN [Concomitant]

REACTIONS (7)
  - Palmar-plantar erythrodysaesthesia syndrome [Not Recovered/Not Resolved]
  - Lip pain [Recovering/Resolving]
  - Nausea [Not Recovered/Not Resolved]
  - Fatigue [Not Recovered/Not Resolved]
  - Feeling abnormal [Not Recovered/Not Resolved]
  - Musculoskeletal pain [Recovered/Resolved]
  - Disease progression [Not Recovered/Not Resolved]
